FAERS Safety Report 18033869 (Version 3)
Quarter: 2022Q3

REPORT INFORMATION
  Report Type: Report from Study
  Country: CA (occurrence: CA)
  Receive Date: 20200716
  Receipt Date: 20220916
  Transmission Date: 20221026
  Serious: Yes (Death)
  Sender: FDA-Public Use
  Company Number: CA-HLS-202000863

PATIENT
  Sex: Male

DRUGS (1)
  1. CLOZARIL [Suspect]
     Active Substance: CLOZAPINE
     Route: 048
     Dates: start: 20130422, end: 20200430

REACTIONS (2)
  - Intestinal obstruction [Fatal]
  - White blood cell count decreased [Unknown]
